FAERS Safety Report 8307277-0 (Version None)
Quarter: 2012Q2

REPORT INFORMATION
  Report Type: 
  Country: None (occurrence: None)
  Receive Date: 20120424
  Receipt Date: 20120412
  Transmission Date: 20120825
  Serious: Yes (Hospitalization)
  Sender: FDA-Public Use
  Company Number: FR-JNJFOC-20120200341

PATIENT
  Sex: Male
  Weight: 38.3 kg

DRUGS (4)
  1. HUMIRA [Concomitant]
     Indication: CROHN'S DISEASE
     Dates: start: 20100427
  2. MONTELUKAST [Concomitant]
  3. INFLIXIMAB, RECOMBINANT [Suspect]
     Indication: CROHN'S DISEASE
     Dosage: DISCONTINUED PRIOR TO ENROLLMENT
     Route: 042
     Dates: start: 20070820
  4. AZATHIOPRINE [Concomitant]
     Indication: CROHN'S DISEASE

REACTIONS (3)
  - DEVICE RELATED INFECTION [None]
  - CROHN'S DISEASE [None]
  - CONDITION AGGRAVATED [None]
